FAERS Safety Report 7725666-X (Version None)
Quarter: 2011Q3

REPORT INFORMATION
  Report Type: 
  Country: None (occurrence: None)
  Receive Date: 20110902
  Receipt Date: 20110819
  Transmission Date: 20111222
  Serious: Yes (Hospitalization)
  Sender: FDA-Public Use
  Company Number: CHPA2011FI11204

PATIENT
  Age: 51 Year
  Sex: Male

DRUGS (2)
  1. LAMISIL [Suspect]
     Dosage: 1 DF, ONCE/SINGLE
     Route: 061
     Dates: start: 20110524, end: 20110524
  2. EXFORGE [Suspect]
     Dosage: 10/160MG, 8-10 MONTHS
     Route: 065

REACTIONS (3)
  - SKIN EXFOLIATION [None]
  - PAPULE [None]
  - PRURITUS [None]
